FAERS Safety Report 13306635 (Version 1)
Quarter: 2017Q1

REPORT INFORMATION
  Report Type: Spontaneous
  Country: US (occurrence: US)
  Receive Date: 20170308
  Receipt Date: 20170308
  Transmission Date: 20170428
  Serious: No
  Sender: FDA-Public Use
  Company Number: US-AKORN PHARMACEUTICALS-2016AKN00809

PATIENT
  Sex: Female
  Weight: 45.35 kg

DRUGS (3)
  1. MYORISAN [Suspect]
     Active Substance: ISOTRETINOIN
     Indication: ACNE
     Dosage: 40 MG, UNK
     Route: 048
     Dates: start: 20160129, end: 20160324
  2. MYORISAN [Suspect]
     Active Substance: ISOTRETINOIN
     Dosage: 80 MG, UNK
     Route: 048
     Dates: start: 20160520, end: 20160816
  3. MYORISAN [Suspect]
     Active Substance: ISOTRETINOIN
     Dosage: 60 MG, UNK
     Route: 048
     Dates: start: 20160325, end: 20160519

REACTIONS (8)
  - Chapped lips [Recovered/Resolved]
  - Lip exfoliation [Recovered/Resolved]
  - Drug ineffective [Recovered/Resolved]
  - Erythema [Recovered/Resolved]
  - Arthralgia [Recovered/Resolved]
  - Fatigue [Recovered/Resolved]
  - Oral herpes [Recovered/Resolved]
  - Cheilitis [Recovered/Resolved]

NARRATIVE: CASE EVENT DATE: 2016
